FAERS Safety Report 25665832 (Version 1)
Quarter: 2025Q3

REPORT INFORMATION
  Report Type: Spontaneous
  Country: CA (occurrence: CA)
  Receive Date: 20250811
  Receipt Date: 20250811
  Transmission Date: 20251020
  Serious: Yes (Life-Threatening, Hospitalization)
  Sender: PFIZER
  Company Number: CA-PFIZER INC-202500158520

PATIENT
  Age: 63 Year
  Sex: Male

DRUGS (29)
  1. FRAGMIN [Suspect]
     Active Substance: DALTEPARIN SODIUM
     Route: 058
  2. ACETAMINOPHEN [Concomitant]
     Active Substance: ACETAMINOPHEN
  3. ASPIRIN [Concomitant]
     Active Substance: ASPIRIN
     Route: 065
  4. AMIODARONE [Concomitant]
     Active Substance: AMIODARONE
  5. BISOPROLOL [Concomitant]
     Active Substance: BISOPROLOL
     Route: 065
  6. CALCIUM CHLORIDE [Concomitant]
     Active Substance: CALCIUM CHLORIDE
  7. CEFTRIAXONE [Concomitant]
     Active Substance: CEFTRIAXONE
  8. CHLORHEXIDINE [Concomitant]
     Active Substance: CHLORHEXIDINE
  9. CIPROFLOXACIN [Concomitant]
     Active Substance: CIPROFLOXACIN
  10. DIMENHYDRINATE [Concomitant]
     Active Substance: DIMENHYDRINATE
  11. ESOMEPRAZOLE [Concomitant]
     Active Substance: ESOMEPRAZOLE
     Route: 065
  12. FRAGMIN [Concomitant]
     Active Substance: DALTEPARIN SODIUM
  13. FUROSEMIDE [Concomitant]
     Active Substance: FUROSEMIDE
     Route: 065
  14. GLYCERIN [Concomitant]
     Active Substance: GLYCERIN
  15. HYDROMORPHONE [Concomitant]
     Active Substance: HYDROMORPHONE
  16. LASIX [Concomitant]
     Active Substance: FUROSEMIDE
  17. MAGNESIUM SULFATE [Concomitant]
     Active Substance: MAGNESIUM SULFATE
  18. MEROPENEM [Concomitant]
     Active Substance: MEROPENEM
  19. METOPROLOL [Concomitant]
     Active Substance: METOPROLOL
     Route: 065
  20. MINERAL OIL [Concomitant]
     Active Substance: MINERAL OIL
  21. MUPIROCIN [Concomitant]
     Active Substance: MUPIROCIN
  22. NOREPINEPHRINE [Concomitant]
     Active Substance: NOREPINEPHRINE
  23. ONDANSETRON [Concomitant]
     Active Substance: ONDANSETRON
  24. PANTOPRAZOLE [Concomitant]
     Active Substance: PANTOPRAZOLE
  25. PIPERACILLIN SODIUM\TAZOBACTAM SODIUM [Concomitant]
     Active Substance: PIPERACILLIN SODIUM\TAZOBACTAM SODIUM
  26. POTASSIUM CHLORIDE [Concomitant]
     Active Substance: POTASSIUM CHLORIDE
  27. PROPOFOL [Concomitant]
     Active Substance: PROPOFOL
     Route: 065
  28. RAMIPRIL [Concomitant]
     Active Substance: RAMIPRIL
  29. VANCOMYCIN [Concomitant]
     Active Substance: VANCOMYCIN

REACTIONS (2)
  - Heparin-induced thrombocytopenia [Recovering/Resolving]
  - Thrombotic thrombocytopenic purpura [Recovering/Resolving]
